FAERS Safety Report 26138910 (Version 1)
Quarter: 2025Q4

REPORT INFORMATION
  Report Type: Report from Study
  Country: US (occurrence: US)
  Receive Date: 20251210
  Receipt Date: 20251210
  Transmission Date: 20260117
  Serious: No
  Sender: ACADIA PHARMACEUTICALS
  Company Number: US-ACADIA PHARMACEUTICALS INC.-ACA-2025-TRF-013012

PATIENT
  Sex: Female

DRUGS (2)
  1. DAYBUE [Suspect]
     Active Substance: TROFINETIDE
     Indication: Rett syndrome
     Dosage: 11 MILLILITER, TID
  2. DAYBUE [Suspect]
     Active Substance: TROFINETIDE
     Dosage: 5 MILLILITER, TID

REACTIONS (4)
  - Gastrointestinal disorder [Not Recovered/Not Resolved]
  - Weight gain poor [Not Recovered/Not Resolved]
  - Diarrhoea [Recovering/Resolving]
  - Underdose [Not Recovered/Not Resolved]
